FAERS Safety Report 4475279-0 (Version None)
Quarter: 2004Q4

REPORT INFORMATION
  Report Type: 
  Country: None (occurrence: None)
  Receive Date: 20041015
  Receipt Date: 20041006
  Transmission Date: 20050328
  Serious: Yes (Other)
  Sender: FDA-Public Use
  Company Number: US-BRISTOL-MYERS SQUIBB COMPANY-12725370

PATIENT
  Age: 71 Year
  Sex: Male

DRUGS (1)
  1. ERBITUX [Suspect]
     Route: 042
     Dates: start: 20041006, end: 20041006

REACTIONS (1)
  - MYOCARDIAL INFARCTION [None]
